FAERS Safety Report 5849542-2 (Version None)
Quarter: 2008Q3

REPORT INFORMATION
  Report Type: 
  Country: None (occurrence: None)
  Receive Date: 20080819
  Receipt Date: 20080814
  Transmission Date: 20090109
  Serious: Yes (Other)
  Sender: FDA-Public Use
  Company Number: B0533624A

PATIENT
  Age: 4 Year
  Sex: Male

DRUGS (2)
  1. LAMICTAL [Suspect]
     Indication: EPILEPSY
     Dosage: 2MG PER DAY
     Route: 048
     Dates: start: 20080701, end: 20080801
  2. DEPAKENE [Concomitant]
     Indication: EPILEPSY
     Dosage: 480MG PER DAY
     Route: 048

REACTIONS (1)
  - AGGRESSION [None]
